FAERS Safety Report 21138170 (Version 2)
Quarter: 2024Q1

REPORT INFORMATION
  Report Type: Spontaneous
  Country: JP (occurrence: JP)
  Receive Date: 20220727
  Receipt Date: 20240123
  Transmission Date: 20240410
  Serious: Yes (Death)
  Sender: FDA-Public Use
  Company Number: JP-PFIZER INC-PV202200026353

PATIENT
  Age: 3 Decade
  Sex: Female
  Weight: 62.1 kg

DRUGS (32)
  1. LORAZEPAM [Suspect]
     Active Substance: LORAZEPAM
     Dosage: UNK
  2. TRIAZOLAM [Suspect]
     Active Substance: TRIAZOLAM
  3. ALPRAZOLAM [Suspect]
     Active Substance: ALPRAZOLAM
  4. CODEINE PHOSPHATE [Suspect]
     Active Substance: CODEINE PHOSPHATE
     Dosage: UNK
  5. ZOLPIDEM TARTRATE [Suspect]
     Active Substance: ZOLPIDEM TARTRATE
     Dosage: UNK
  6. CHLORPHENIRAMINE [Suspect]
     Active Substance: CHLORPHENIRAMINE
  7. OLANZAPINE [Suspect]
     Active Substance: OLANZAPINE
  8. PEMOLINE [Suspect]
     Active Substance: PEMOLINE
     Dosage: UNK
  9. CHLORPROMAZINE [Suspect]
     Active Substance: CHLORPROMAZINE
     Dosage: UNK
  10. DIHYDROCODEINE [Suspect]
     Active Substance: DIHYDROCODEINE
     Dosage: UNK
  11. EPHEDRINE [Suspect]
     Active Substance: EPHEDRINE
     Dosage: UNK
  12. ESCITALOPRAM [Suspect]
     Active Substance: ESCITALOPRAM OXALATE
     Dosage: UNK
  13. AMITRIPTYLINE [Suspect]
     Active Substance: AMITRIPTYLINE
     Dosage: UNK
  14. ASENAPINE [Suspect]
     Active Substance: ASENAPINE
     Dosage: UNK
  15. BLONANSERIN [Suspect]
     Active Substance: BLONANSERIN
     Dosage: UNK
  16. BROMAZEPAM [Suspect]
     Active Substance: BROMAZEPAM
     Dosage: UNK
  17. CAFFEINE [Suspect]
     Active Substance: CAFFEINE
     Dosage: UNK
  18. CLONAZEPAM [Suspect]
     Active Substance: CLONAZEPAM
     Dosage: UNK
  19. DEXTRORPHAN [Suspect]
     Active Substance: DEXTRORPHAN
     Dosage: UNK
  20. ETIZOLAM [Suspect]
     Active Substance: ETIZOLAM
     Dosage: UNK
  21. FLUNITRAZEPAM [Suspect]
     Active Substance: FLUNITRAZEPAM
     Dosage: UNK
  22. METHYLEPHEDRINE [Suspect]
     Active Substance: METHYLEPHEDRINE
     Dosage: UNK
  23. METHYLPHENIDATE [Suspect]
     Active Substance: METHYLPHENIDATE
     Dosage: UNK
  24. NORTRIPTYLINE [Suspect]
     Active Substance: NORTRIPTYLINE
  25. PENTOBARBITAL [Suspect]
     Active Substance: PENTOBARBITAL
     Dosage: UNK
  26. PHENOBARBITAL [Suspect]
     Active Substance: PHENOBARBITAL
     Dosage: UNK
  27. PROMETHAZINE [Suspect]
     Active Substance: PROMETHAZINE HYDROCHLORIDE
     Dosage: UNK
  28. PSEUDOEPHEDRINE [Suspect]
     Active Substance: PSEUDOEPHEDRINE
     Dosage: UNK
  29. ROPINIROLE [Suspect]
     Active Substance: ROPINIROLE
     Dosage: UNK
  30. SULPIRIDE [Suspect]
     Active Substance: SULPIRIDE
     Dosage: UNK
  31. SUVOREXANT [Suspect]
     Active Substance: SUVOREXANT
     Dosage: UNK
  32. ZOPICLONE [Suspect]
     Active Substance: ZOPICLONE
     Dosage: UNK

REACTIONS (3)
  - Overdose [Fatal]
  - Drug abuse [Fatal]
  - Toxicity to various agents [Fatal]
